FAERS Safety Report 5277529-X (Version None)
Quarter: 2007Q1

REPORT INFORMATION
  Report Type: 
  Country: None (occurrence: None)
  Receive Date: 20070327
  Receipt Date: 20070316
  Transmission Date: 20070707
  Serious: Yes (Life-Threatening, Hospitalization)
  Sender: FDA-Public Use
  Company Number: CH-ROCHE-488201

PATIENT
  Age: 48 Year
  Sex: Female

DRUGS (7)
  1. RIVOTRIL [Suspect]
     Indication: EPILEPSY
     Route: 065
     Dates: start: 20061224
  2. RIVOTRIL [Suspect]
     Route: 065
     Dates: start: 20061226
  3. RIVOTRIL [Suspect]
     Route: 065
     Dates: start: 20070205
  4. TIENAM [Suspect]
     Indication: PNEUMONIA
     Route: 040
     Dates: start: 20070205, end: 20070206
  5. TAZOBAC [Suspect]
     Indication: PNEUMONIA
     Route: 065
     Dates: start: 20070205
  6. MORPHINE [Concomitant]
     Dosage: FREQUENCY REPORTED AS AS NECESSARY.
  7. NEXIUM [Concomitant]

REACTIONS (4)
  - CONFUSIONAL STATE [None]
  - ENCEPHALOPATHY [None]
  - EPILEPSY [None]
  - HALLUCINATION [None]
